FAERS Safety Report 7028999-8 (Version None)
Quarter: 2010Q4

REPORT INFORMATION
  Report Type: 
  Country: None (occurrence: None)
  Receive Date: 20101005
  Receipt Date: 20100930
  Transmission Date: 20110411
  Serious: Yes (Other)
  Sender: FDA-Public Use
  Company Number: A0883645A

PATIENT
  Age: 17 Year
  Sex: Female

DRUGS (4)
  1. EPIVIR [Suspect]
     Indication: ANTIVIRAL TREATMENT
     Dosage: 300MG PER DAY
     Route: 048
  2. ZIAGEN [Suspect]
     Indication: ANTIVIRAL TREATMENT
     Dosage: 600MG PER DAY
     Route: 048
  3. KALETRA [Suspect]
     Indication: ANTIVIRAL TREATMENT
     Route: 048
  4. INTELENCE [Suspect]
     Indication: ANTIVIRAL TREATMENT
     Dosage: 400MG PER DAY
     Route: 048
     Dates: start: 20100525, end: 20100525

REACTIONS (2)
  - ABORTION INDUCED [None]
  - DRUG EXPOSURE DURING PREGNANCY [None]
